FAERS Safety Report 12067823 (Version 1)
Quarter: 2016Q1

REPORT INFORMATION
  Report Type: Spontaneous
  Country: US (occurrence: US)
  Receive Date: 20160211
  Receipt Date: 20160211
  Transmission Date: 20160526
  Serious: No
  Sender: FDA-Public Use
  Company Number: US-SMITH AND NEPHEW, INC-2015SMT00083

PATIENT
  Age: 60 Year
  Sex: Male
  Weight: 115.65 kg

DRUGS (4)
  1. UNSPECIFIED BLOOD PRESSURE MEDICATION(S) [Concomitant]
  2. UNSPECIFIED DIABETES MEDICATION(S) [Concomitant]
  3. REGRANEX [Suspect]
     Active Substance: BECAPLERMIN
     Indication: PROMOTION OF WOUND HEALING
     Dosage: 1 DOSAGE UNITS, TWICE
     Route: 061
     Dates: start: 20150427, end: 20150428
  4. PLAVIX [Concomitant]
     Active Substance: CLOPIDOGREL BISULFATE
     Dosage: UNK
     Dates: start: 2014

REACTIONS (4)
  - Peripheral swelling [Recovered/Resolved]
  - Erythema [Recovered/Resolved]
  - Application site haemorrhage [Recovered/Resolved]
  - Application site pain [Recovered/Resolved]

NARRATIVE: CASE EVENT DATE: 20150428
